FAERS Safety Report 23014133 (Version 1)
Quarter: 2023Q4

REPORT INFORMATION
  Report Type: Spontaneous
  Country: US (occurrence: None)
  Receive Date: 20231002
  Receipt Date: 20231002
  Transmission Date: 20240110
  Serious: Yes (Death)
  Sender: FDA-Public Use
  Company Number: US-ROCHE-2811678

PATIENT
  Age: 24 Year
  Sex: Male
  Weight: 23.608 kg

DRUGS (4)
  1. EVRYSDI [Suspect]
     Active Substance: RISDIPLAM
     Indication: Spinal muscular atrophy
     Dosage: 6.6 ML BY MOUTH,?60 MG ORAL SOLUTION 80 ML BT?START DATE BASED ON ACCREDO FIRST SHIP DATE: 10/JUN/20
     Route: 048
  2. ALBUTEROL SULFATE [Concomitant]
     Active Substance: ALBUTEROL SULFATE
     Indication: Asthma
     Dates: start: 20140627
  3. MIRALAX [Concomitant]
     Active Substance: POLYETHYLENE GLYCOL 3350
     Indication: Constipation
     Dates: start: 20140627
  4. VITAMIN D2 [Concomitant]
     Active Substance: ERGOCALCIFEROL
     Indication: Osteopenia
     Dosage: 1250 MCG
     Dates: start: 20140627

REACTIONS (1)
  - Death [Fatal]

NARRATIVE: CASE EVENT DATE: 20210403
